FAERS Safety Report 10370610 (Version 1)
Quarter: 2014Q3

REPORT INFORMATION
  Report Type: Spontaneous
  Country: US (occurrence: None)
  Receive Date: 20140807
  Receipt Date: 20140807
  Transmission Date: 20150326
  Serious: Yes (Hospitalization)
  Sender: FDA-Public Use
  Company Number: None

PATIENT
  Age: 76 Year
  Sex: Male
  Weight: 107.7 kg

DRUGS (1)
  1. SITAGLIPTIN [Suspect]
     Active Substance: SITAGLIPTIN
     Indication: DIABETES MELLITUS
     Route: 048
     Dates: start: 20131031, end: 20140522

REACTIONS (4)
  - Pancreatitis [None]
  - Endoscopy small intestine abnormal [None]
  - Renal failure chronic [None]
  - Blood triglycerides increased [None]

NARRATIVE: CASE EVENT DATE: 20140522
